FAERS Safety Report 8849191 (Version 1)
Quarter: 2012Q4

REPORT INFORMATION
  Report Type: 
  Country: US (occurrence: US)
  Receive Date: 20121019
  Receipt Date: 20121019
  Transmission Date: 20130627
  Serious: Yes (Hospitalization, Other)
  Sender: FDA-Public Use
  Company Number: PHEH2012US019252

PATIENT
  Age: 65 Year
  Sex: Male
  Weight: 93.3 kg

DRUGS (20)
  1. GLEEVEC [Suspect]
     Indication: CHRONIC MYELOID LEUKAEMIA
     Dosage: 1 DF, QD
     Route: 048
     Dates: start: 20090514
  2. GLEEVEC [Suspect]
     Dosage: 5 DF, QD
     Route: 048
     Dates: start: 20120510
  3. CALCIUM [Concomitant]
     Dosage: 600 mg
     Route: 048
     Dates: start: 20111014
  4. CALCIUM [Concomitant]
     Dosage: 1500 mg, UNK
     Route: 048
  5. CLINDAMYCIN [Concomitant]
     Dosage: 150 mg 1
     Dates: start: 20111014
  6. FENTANYL [Concomitant]
     Dosage: 1 DF, Q48H
     Route: 062
     Dates: start: 20090514
  7. FERROUS SULFATE [Concomitant]
     Dosage: 65 mg, 1
     Route: 048
     Dates: start: 20120514
  8. FISH OIL [Concomitant]
     Dosage: 1 DF, QD
     Dates: start: 19521014
  9. FLAVOXATE [Concomitant]
     Dosage: 1 DF, 8 hourly three times a day
     Route: 048
     Dates: start: 20120602
  10. LASIX [Concomitant]
     Dosage: 1 DF, QD
     Route: 048
     Dates: start: 20110620
  11. LYRICA [Concomitant]
     Dosage: 1 DF, TID
     Route: 048
     Dates: start: 20110620
  12. MAGNESIUM [Concomitant]
     Dosage: 1 DF, QD
     Route: 048
     Dates: start: 20090514
  13. MULTI-VIT [Concomitant]
     Dosage: 1 DF, QD
     Route: 048
     Dates: start: 20090508
  14. NAPROXEN [Concomitant]
     Dosage: 2 DF, QD
     Route: 048
     Dates: start: 20090514
  15. OMEPRAZOL [Concomitant]
     Dosage: 1 DF, QD
     Route: 048
     Dates: start: 20100602
  16. POTASSIUM CHLORIDE [Concomitant]
     Dosage: 1 DF, QD
     Route: 048
     Dates: start: 20121014
  17. PREDNISONE [Concomitant]
     Dosage: UNK UKN, UNK
     Dates: start: 20090508
  18. SELENIUM [Concomitant]
     Dosage: 1 DF, QD
     Route: 048
     Dates: start: 20110620
  19. SPIRONOLACTONE [Concomitant]
     Dosage: 1 DF, QD
     Route: 048
     Dates: start: 20110620
  20. VITAMIN C [Concomitant]
     Dosage: 1 DF, QD
     Route: 048
     Dates: start: 20121014

REACTIONS (10)
  - Gangrene [Unknown]
  - Anaemia [Recovering/Resolving]
  - Haemoglobin decreased [Unknown]
  - Oesophageal varices haemorrhage [Unknown]
  - Foot fracture [Unknown]
  - Bone marrow oedema [Unknown]
  - Skin ulcer [Unknown]
  - Cellulitis [Unknown]
  - Oedema [Unknown]
  - Pyrexia [Unknown]
